FAERS Safety Report 9936889 (Version 1)
Quarter: 2014Q1

REPORT INFORMATION
  Report Type: Spontaneous
  Country: US (occurrence: None)
  Receive Date: 20140115
  Receipt Date: 20140115
  Transmission Date: 20141002
  Serious: No
  Sender: FDA-Public Use
  Company Number: 2013US002766

PATIENT
  Age: 76 Year
  Sex: Male
  Weight: 102 kg

DRUGS (1)
  1. ICLUSIG (PONATINIB) TABLET, 45MG [Suspect]
     Indication: CHRONIC MYELOID LEUKAEMIA
     Dosage: 45 MG, DAILY FOR 14 DAYS, THEN OFF FOR 14 DAYS, ORAL
     Route: 048
     Dates: start: 20130522

REACTIONS (2)
  - Rash [None]
  - Nasopharyngitis [None]
